FAERS Safety Report 25870399 (Version 1)
Quarter: 2025Q4

REPORT INFORMATION
  Report Type: Spontaneous
  Country: US (occurrence: None)
  Receive Date: 20251001
  Receipt Date: 20251001
  Transmission Date: 20260118
  Serious: Yes (Hospitalization)
  Sender: FDA-CTU
  Company Number: None

PATIENT
  Sex: Female

DRUGS (1)
  1. PROCRIT [Suspect]
     Active Substance: ERYTHROPOIETIN
     Indication: Anaemia of chronic disease
     Dosage: NJECT 1 ML UNDER THE SKIN (SUBCUTANEOUS INJECTION) EVERY 6 WEEKS
     Route: 058
     Dates: start: 20210409

REACTIONS (2)
  - Physiotherapy [None]
  - Rehabilitation therapy [None]
